FAERS Safety Report 7101751-0 (Version None)
Quarter: 2010Q4

REPORT INFORMATION
  Report Type: 
  Country: None (occurrence: None)
  Receive Date: 20101115
  Receipt Date: 20101104
  Transmission Date: 20110411
  Serious: Yes (Other)
  Sender: FDA-Public Use
  Company Number: AU-JNJFOC-20101102714

PATIENT
  Sex: Female

DRUGS (5)
  1. GOLIMUMAB [Suspect]
     Indication: ILL-DEFINED DISORDER
     Route: 058
  2. METHOTREXATE [Suspect]
     Indication: ILL-DEFINED DISORDER
     Route: 065
  3. FAMCICLOVIR [Concomitant]
     Route: 065
  4. PREDNISOLONE SODIUM PHOSPHATE [Concomitant]
     Route: 047
  5. ACETAZOLAMIDE [Concomitant]

REACTIONS (1)
  - HERPES ZOSTER [None]
